FAERS Safety Report 14023583 (Version 1)
Quarter: 2017Q3

REPORT INFORMATION
  Report Type: Spontaneous
  Country: US (occurrence: US)
  Receive Date: 20170928
  Receipt Date: 20170928
  Transmission Date: 20171128
  Serious: No
  Sender: FDA-Public Use
  Company Number: US-SA-2016SA220302

PATIENT
  Age: 56 Year
  Sex: Female

DRUGS (10)
  1. LEVOTHYROXINE SODIUM. [Concomitant]
     Active Substance: LEVOTHYROXINE SODIUM
  2. COENZYME Q10 [Concomitant]
     Active Substance: UBIDECARENONE
  3. AUBAGIO [Suspect]
     Active Substance: TERIFLUNOMIDE
     Indication: MULTIPLE SCLEROSIS
     Route: 048
  4. VITAMIN C [Concomitant]
     Active Substance: ASCORBIC ACID
  5. FISH OIL [Concomitant]
     Active Substance: FISH OIL
  6. VITAMIN D [Concomitant]
     Active Substance: CHOLECALCIFEROL
  7. MAGNESIUM OXIDE. [Concomitant]
     Active Substance: MAGNESIUM OXIDE
  8. CALCIUM ACETATE. [Concomitant]
     Active Substance: CALCIUM ACETATE
  9. LYRICA [Concomitant]
     Active Substance: PREGABALIN
  10. VITAMIN E [Concomitant]
     Active Substance: .ALPHA.-TOCOPHEROL

REACTIONS (15)
  - Gait disturbance [Unknown]
  - Vertigo [Unknown]
  - Muscular weakness [Unknown]
  - Depressed mood [Unknown]
  - Balance disorder [Unknown]
  - Fatigue [Unknown]
  - Dizziness [Unknown]
  - Dyspnoea exertional [Unknown]
  - Hypoaesthesia [Unknown]
  - Functional gastrointestinal disorder [Unknown]
  - Visual impairment [Unknown]
  - Myalgia [Unknown]
  - Emotional disorder [Unknown]
  - Neuralgia [Unknown]
  - Thinking abnormal [Unknown]
